FAERS Safety Report 8107473-1 (Version None)
Quarter: 2012Q1

REPORT INFORMATION
  Report Type: 
  Country: None (occurrence: None)
  Receive Date: 20120202
  Receipt Date: 20120123
  Transmission Date: 20120608
  Serious: Yes (Hospitalization)
  Sender: FDA-Public Use
  Company Number: IT-SANOFI-AVENTIS-2012SA006164

PATIENT
  Age: 3 Year
  Sex: Male

DRUGS (6)
  1. ANTI-THYMOCYTE GLOBULIN EQUINE NOS [Suspect]
     Indication: BONE MARROW CONDITIONING REGIMEN
     Route: 065
  2. FLUDARA [Suspect]
     Indication: BONE MARROW CONDITIONING REGIMEN
     Route: 065
  3. BUSULFAN [Concomitant]
  4. HYDROXYUREA [Concomitant]
  5. CYCLOPHOSPHAMIDE [Concomitant]
  6. AZATHIOPRINE [Concomitant]

REACTIONS (1)
  - POST TRANSPLANT LYMPHOPROLIFERATIVE DISORDER [None]
